FAERS Safety Report 8925904 (Version 1)
Quarter: 2012Q4

REPORT INFORMATION
  Report Type: 
  Country: IT (occurrence: IT)
  Receive Date: 20121126
  Receipt Date: 20121126
  Transmission Date: 20130627
  Serious: Yes (Other)
  Sender: FDA-Public Use
  Company Number: PHHY2012IT107296

PATIENT

DRUGS (2)
  1. AFINITOR [Suspect]
     Indication: RENAL CELL CARCINOMA
     Dosage: 10 mg, daily
     Route: 048
     Dates: start: 20120430, end: 20121018
  2. AFINITOR [Suspect]
     Dosage: 5 mg, daily

REACTIONS (1)
  - Eosinophilic pneumonia [Recovered/Resolved]
